FAERS Safety Report 13754230 (Version 1)
Quarter: 2017Q3

REPORT INFORMATION
  Report Type: Spontaneous
  Country: FR (occurrence: FR)
  Receive Date: 20170714
  Receipt Date: 20170714
  Transmission Date: 20171127
  Serious: Yes (Disabling)
  Sender: FDA-Public Use
  Company Number: FR-BIOVITRUM-2017FR0663

PATIENT
  Sex: Female

DRUGS (5)
  1. KINERET [Suspect]
     Active Substance: ANAKINRA
     Indication: PYREXIA
  2. ACITRETIN. [Concomitant]
     Active Substance: ACITRETIN
  3. KINERET [Suspect]
     Active Substance: ANAKINRA
     Indication: ARTHRITIS
     Dosage: 50 MG PER DAY
  4. VITAMIN A SUPPLEMENT [Concomitant]
  5. KINERET [Suspect]
     Active Substance: ANAKINRA
     Indication: INFLAMMATION

REACTIONS (4)
  - Corneal dystrophy [Unknown]
  - Neovascularisation [Unknown]
  - Tooth hypoplasia [Unknown]
  - Photophobia [Not Recovered/Not Resolved]
